FAERS Safety Report 11646207 (Version 1)
Quarter: 2015Q4

REPORT INFORMATION
  Report Type: Spontaneous
  Country: US (occurrence: US)
  Receive Date: 20151020
  Receipt Date: 20151020
  Transmission Date: 20160304
  Serious: No
  Sender: FDA-Public Use
  Company Number: US-ROCHE-ITM201505IM016152

PATIENT
  Sex: Female
  Weight: 69.01 kg

DRUGS (2)
  1. ESBRIET [Suspect]
     Active Substance: PIRFENIDONE
     Dosage: 267 MG CAPSULE
     Route: 048
     Dates: start: 20150320
  2. ESBRIET [Suspect]
     Active Substance: PIRFENIDONE
     Indication: IDIOPATHIC PULMONARY FIBROSIS
     Dosage: 3 CAPS, 2403 MG TOTAL DOSE
     Route: 048
     Dates: start: 20150323

REACTIONS (5)
  - Insomnia [Unknown]
  - Gastrooesophageal reflux disease [Unknown]
  - Influenza [Unknown]
  - Myalgia [Unknown]
  - Gastric disorder [Unknown]
